FAERS Safety Report 11525010 (Version 1)
Quarter: 2015Q3

REPORT INFORMATION
  Report Type: Spontaneous
  Country: AU (occurrence: AU)
  Receive Date: 20150918
  Receipt Date: 20150918
  Transmission Date: 20151125
  Serious: Yes (Other)
  Sender: FDA-Public Use
  Company Number: AU-JNJFOC-20150908798

PATIENT
  Sex: Female

DRUGS (1)
  1. REMICADE [Suspect]
     Active Substance: INFLIXIMAB
     Indication: PRODUCT USED FOR UNKNOWN INDICATION
     Dosage: FOURTH INFUSION
     Route: 042

REACTIONS (6)
  - Myopathy [Unknown]
  - Chest pain [Unknown]
  - Tachycardia [Unknown]
  - Arthralgia [Unknown]
  - Infusion related reaction [Unknown]
  - Muscle fatigue [Unknown]
